FAERS Safety Report 9199627 (Version 1)
Quarter: 2013Q1

REPORT INFORMATION
  Report Type: Spontaneous
  Country: US (occurrence: US)
  Receive Date: 20130329
  Receipt Date: 20130329
  Transmission Date: 20140127
  Serious: No
  Sender: FDA-Public Use
  Company Number: US-GLAXOSMITHKLINE-A1014188A

PATIENT
  Age: 22 Year
  Sex: Female

DRUGS (8)
  1. BENLYSTA [Suspect]
     Indication: SYSTEMIC LUPUS ERYTHEMATOSUS
     Dosage: 400MG MONTHLY
     Route: 042
     Dates: start: 201207, end: 201301
  2. NUVARING [Concomitant]
  3. PLAQUENIL [Concomitant]
  4. METFORMIN [Concomitant]
  5. PROCARDIA XL [Concomitant]
  6. CALCIUM W/ VITAMIN D [Concomitant]
  7. WOMENS MULTIVITAMIN [Concomitant]
  8. BABY ASPIRIN [Concomitant]

REACTIONS (4)
  - Hypersensitivity [Recovered/Resolved]
  - Throat tightness [Recovered/Resolved]
  - Muscle tightness [Recovered/Resolved]
  - Pruritus [Recovered/Resolved]
